FAERS Safety Report 23397831 (Version 1)
Quarter: 2024Q1

REPORT INFORMATION
  Report Type: Spontaneous
  Country: US (occurrence: None)
  Receive Date: 20240112
  Receipt Date: 20240112
  Transmission Date: 20240409
  Serious: Yes (Hospitalization)
  Sender: FDA-Public Use
  Company Number: None

PATIENT
  Sex: Female

DRUGS (7)
  1. PIRFENIDONE [Suspect]
     Active Substance: PIRFENIDONE
     Indication: Interstitial lung disease
     Dosage: OTHER FREQUENCY : BID WITH MEALS;?
     Route: 048
     Dates: start: 20231121
  2. PIRFENIDONE [Suspect]
     Active Substance: PIRFENIDONE
     Dosage: OTHER FREQUENCY : BID WITH MEALS;?
     Route: 048
  3. FISH OIL [Concomitant]
     Active Substance: FISH OIL
  4. MAGNESIUM [Concomitant]
     Active Substance: MAGNESIUM
  5. VITAMIN D3 [Concomitant]
     Active Substance: CHOLECALCIFEROL
  6. MENAQUINONE 6 [Concomitant]
     Active Substance: MENAQUINONE 6
  7. ZINC [Concomitant]

REACTIONS (4)
  - Surgery [None]
  - Diverticulitis [None]
  - Pain [None]
  - Intentional dose omission [None]
